FAERS Safety Report 19847428 (Version 8)
Quarter: 2021Q4

REPORT INFORMATION
  Report Type: Spontaneous
  Country: FR (occurrence: FR)
  Receive Date: 20210917
  Receipt Date: 20211111
  Transmission Date: 20220303
  Serious: Yes (Other)
  Sender: FDA-Public Use
  Company Number: FR-PFIZER INC-202101189738

PATIENT
  Age: 88 Year
  Sex: Female

DRUGS (6)
  1. ELIQUIS [Suspect]
     Active Substance: APIXABAN
     Indication: Cerebrovascular accident prophylaxis
     Dosage: UNK
     Route: 065
  2. TRIMEBUTINE MALEATE [Suspect]
     Active Substance: TRIMEBUTINE MALEATE
     Indication: Abdominal distension
     Dosage: 3 TABLETS OF 200MG OF DEBRIDLAT PER DAY FOR 2-3 MONTHS
     Route: 065
     Dates: end: 2021
  3. TRIMEBUTINE MALEATE [Suspect]
     Active Substance: TRIMEBUTINE MALEATE
     Indication: Gastrointestinal pain
     Dosage: INCREASE THE DOSES OF TRIMEBUTINE MALEATE
  4. XANAX [Suspect]
     Active Substance: ALPRAZOLAM
     Indication: Stress
     Dosage: 1 DOSAGE FORM
     Route: 065
  5. XANAX [Suspect]
     Active Substance: ALPRAZOLAM
     Indication: Anxiety
  6. PHLOROGLUCINOL [Concomitant]
     Active Substance: PHLOROGLUCINOL
     Indication: Gastrointestinal disorder
     Dosage: UNK
     Route: 065

REACTIONS (8)
  - Arrhythmia [Unknown]
  - Abdominal distension [Unknown]
  - Gallbladder disorder [Unknown]
  - Extrasystoles [Unknown]
  - Overdose [Unknown]
  - Tooth discolouration [Unknown]
  - Dysgeusia [Unknown]
  - Overdose [Unknown]
